FAERS Safety Report 9366327 (Version 1)
Quarter: 2013Q2

REPORT INFORMATION
  Report Type: Spontaneous
  Country: US (occurrence: US)
  Receive Date: 20130625
  Receipt Date: 20130625
  Transmission Date: 20140414
  Serious: No
  Sender: FDA-Public Use
  Company Number: US-GLAXOSMITHKLINE-A0997678A

PATIENT
  Age: 45 Year
  Sex: Female

DRUGS (9)
  1. VERAMYST [Suspect]
     Indication: RHINITIS ALLERGIC
     Dosage: 2SPR PER DAY
     Route: 045
     Dates: start: 201112, end: 201203
  2. ATENOLOL [Concomitant]
  3. HCTZ [Concomitant]
  4. PROTONIX [Concomitant]
  5. LIPITOR [Concomitant]
  6. COMBIVENT [Concomitant]
  7. PRO-AIR [Concomitant]
  8. SINGULAIR [Concomitant]
  9. ZYRTEC [Concomitant]

REACTIONS (1)
  - Headache [Recovered/Resolved]
